FAERS Safety Report 23252918 (Version 3)
Quarter: 2024Q1

REPORT INFORMATION
  Report Type: Spontaneous
  Country: CL (occurrence: CL)
  Receive Date: 20231201
  Receipt Date: 20240306
  Transmission Date: 20240410
  Serious: Yes (Other)
  Sender: FDA-Public Use
  Company Number: CL-009507513-2311CHL010654

PATIENT
  Age: 41 Year
  Sex: Female

DRUGS (5)
  1. KEYTRUDA [Suspect]
     Active Substance: PEMBROLIZUMAB
     Indication: Triple negative breast cancer
     Dosage: 200 MG EVERY 21 DAYS
     Dates: start: 20230620
  2. KEYTRUDA [Suspect]
     Active Substance: PEMBROLIZUMAB
     Dosage: UNK
     Dates: start: 20240131, end: 20240131
  3. KEYTRUDA [Suspect]
     Active Substance: PEMBROLIZUMAB
     Dosage: UNK
     Dates: start: 20240221, end: 20240221
  4. GEMCITABINE [Concomitant]
     Active Substance: GEMCITABINE
     Dates: start: 20230620
  5. CARBOPLATIN [Concomitant]
     Active Substance: CARBOPLATIN
     Dates: start: 20230620

REACTIONS (13)
  - Mastectomy [Unknown]
  - Seizure [Unknown]
  - Malignant neoplasm progression [Unknown]
  - Respiratory tract inflammation [Unknown]
  - Hepatic steatosis [Unknown]
  - Paranasal sinus inflammation [Unknown]
  - Cholelithiasis [Unknown]
  - Lower limb fracture [Unknown]
  - General physical health deterioration [Unknown]
  - Ill-defined disorder [Unknown]
  - Lung disorder [Unknown]
  - Pain [Unknown]
  - Vomiting [Unknown]

NARRATIVE: CASE EVENT DATE: 20230101
